FAERS Safety Report 8813125 (Version 1)
Quarter: 2012Q4

REPORT INFORMATION
  Report Type: 
  Country: US (occurrence: US)
  Receive Date: 20120927
  Receipt Date: 20120927
  Transmission Date: 20130627
  Serious: No
  Sender: FDA-Public Use
  Company Number: US-AMGEN-USASP2012041000

PATIENT
  Sex: Female

DRUGS (3)
  1. PROLIA [Suspect]
     Indication: PRODUCT USED FOR UNKNOWN INDICATION
     Dosage: 60 mg, UNK
  2. VITAMIN D3 [Concomitant]
  3. CALCIUM [Concomitant]

REACTIONS (1)
  - Vitamin D decreased [Unknown]
